FAERS Safety Report 5027567-7 (Version None)
Quarter: 2006Q2

REPORT INFORMATION
  Report Type: 
  Country: None (occurrence: None)
  Receive Date: 20060616
  Receipt Date: 20060606
  Transmission Date: 20061013
  Serious: Yes (Hospitalization)
  Sender: FDA-Public Use
  Company Number: ESWYE700507JUN06

PATIENT
  Sex: Female

DRUGS (12)
  1. ENBREL [Suspect]
     Indication: RHEUMATOID ARTHRITIS
     Route: 058
     Dates: start: 20040511, end: 20050126
  2. CALCIUM GLUCONATE [Concomitant]
     Dosage: 1 G EVERY
     Route: 048
  3. VITAMINS [Concomitant]
     Dosage: 800 UNIT EVERY
     Route: 048
  4. OMEPRAZOLE [Concomitant]
     Dosage: 40 MG EVERY
     Route: 048
  5. CITALOPRAM HYDROBROMIDE [Concomitant]
  6. BISOPROLOL FUMARATE AND HYDROCHLOROTHIAZIDE [Concomitant]
     Dosage: 5 MG EVERY
     Route: 048
  7. BUDESONIDE [Concomitant]
     Dosage: 2 MG EVERY
     Route: 055
  8. ENALAPRIL [Concomitant]
     Dosage: 5 MG EVERY
     Route: 048
  9. ACETYLSALICYLIC ACID SRT [Concomitant]
     Dosage: 150 MG EVERY
     Route: 048
  10. SIMVASTATIN [Concomitant]
     Dosage: 20 MG EVERY
     Route: 048
  11. RISEDRONIC  ACID [Concomitant]
     Dosage: 35 MG EVERY
     Route: 048
  12. PILOCARPINE [Concomitant]
     Dosage: 4 CAPSULE EVERY
     Route: 048

REACTIONS (2)
  - BONE PAIN [None]
  - CARDIOPULMONARY FAILURE [None]
